FAERS Safety Report 15771223 (Version 1)
Quarter: 2018Q4

REPORT INFORMATION
  Report Type: Spontaneous
  Country: JP (occurrence: JP)
  Receive Date: 20181228
  Receipt Date: 20181228
  Transmission Date: 20190205
  Serious: Yes (Death, Other)
  Sender: FDA-Public Use
  Company Number: JP-PFIZER INC-2018530513

PATIENT
  Age: 67 Year
  Sex: Female

DRUGS (5)
  1. LYRICA [Suspect]
     Active Substance: PREGABALIN
     Indication: SPONDYLOLISTHESIS
  2. NORSPAN [Suspect]
     Active Substance: BUPRENORPHINE
     Dosage: 10 MG, DAILY
     Route: 062
     Dates: start: 20181115
  3. LYRICA [Suspect]
     Active Substance: PREGABALIN
     Indication: SCIATICA
     Dosage: 50 MG, 2X/DAY
     Route: 048
     Dates: start: 20180328
  4. CALONAL [Suspect]
     Active Substance: ACETAMINOPHEN
     Dosage: 800 MG, DAILY
     Route: 048
     Dates: start: 20181016
  5. NORSPAN [Suspect]
     Active Substance: BUPRENORPHINE
     Dosage: 5 MG, DAILY
     Route: 062
     Dates: start: 20181017, end: 20181114

REACTIONS (2)
  - Loss of consciousness [Unknown]
  - Multiple organ dysfunction syndrome [Fatal]

NARRATIVE: CASE EVENT DATE: 20181117
